FAERS Safety Report 5179521-2 (Version None)
Quarter: 2006Q4

REPORT INFORMATION
  Report Type: 
  Country: None (occurrence: None)
  Receive Date: 20061211
  Receipt Date: 20061127
  Transmission Date: 20070319
  Serious: Yes (Hospitalization)
  Sender: FDA-Public Use
  Company Number: PAR_1130_2006

PATIENT
  Age: 57 Year
  Sex: Female

DRUGS (2)
  1. IBUPROFEN [Suspect]
     Dosage: DF PO
     Route: 048
     Dates: start: 20030501, end: 20030501
  2. IBUPROFEN [Suspect]
     Dosage: DF PO
     Route: 048
     Dates: start: 20030801, end: 20030801

REACTIONS (1)
  - MENINGITIS ASEPTIC [None]
